FAERS Safety Report 7387647-8 (Version None)
Quarter: 2011Q1

REPORT INFORMATION
  Report Type: 
  Country: None (occurrence: None)
  Receive Date: 20110331
  Receipt Date: 20110329
  Transmission Date: 20110831
  Serious: Yes (Other)
  Sender: FDA-Public Use
  Company Number: BR-PFIZER INC-2011045308

PATIENT
  Sex: Female
  Weight: 78 kg

DRUGS (7)
  1. NEURONTIN [Suspect]
     Indication: NEURALGIA
     Dosage: 300 MG, 3X/DAY
     Route: 048
     Dates: start: 20110214, end: 20110201
  2. CORDAREX [Concomitant]
     Indication: HYPERTENSION
     Dosage: UNK
  3. NEURONTIN [Suspect]
     Dosage: 600 MG, 3X/DAY
     Route: 048
     Dates: start: 20110201, end: 20110101
  4. CORUS [Concomitant]
     Indication: HYPERTENSION
     Dosage: UNK
  5. ALDAZIDA [Concomitant]
     Indication: HYPERTENSION
     Dosage: UNK
  6. AMITRIPTYLINE [Concomitant]
     Dosage: UNK
  7. SIMVASTATIN [Concomitant]
     Indication: BLOOD CHOLESTEROL INCREASED
     Dosage: UNK

REACTIONS (3)
  - MORTON'S NEUROMA [None]
  - NEURALGIA [None]
  - URINARY TRACT INFECTION [None]
